FAERS Safety Report 13368819 (Version 1)
Quarter: 2017Q1

REPORT INFORMATION
  Report Type: Spontaneous
  Country: US (occurrence: US)
  Receive Date: 20170324
  Receipt Date: 20170324
  Transmission Date: 20170429
  Serious: Yes (Hospitalization)
  Sender: FDA-Public Use
  Company Number: US-TEVA-753696ACC

PATIENT
  Age: 63 Year
  Sex: Female

DRUGS (2)
  1. FISH OIL [Concomitant]
     Active Substance: FISH OIL
  2. COPAXONE [Suspect]
     Active Substance: GLATIRAMER ACETATE
     Indication: MULTIPLE SCLEROSIS
     Route: 058
     Dates: start: 20141010

REACTIONS (2)
  - Vomiting [Unknown]
  - Foot fracture [Unknown]

NARRATIVE: CASE EVENT DATE: 201702
